FAERS Safety Report 6177745-9 (Version None)
Quarter: 2009Q2

REPORT INFORMATION
  Report Type: 
  Country: None (occurrence: None)
  Receive Date: 20090501
  Receipt Date: 20090501
  Transmission Date: 20091009
  Serious: Yes (Other)
  Sender: FDA-Public Use
  Company Number: None

PATIENT
  Age: 37 Year
  Sex: Female
  Weight: 63.5036 kg

DRUGS (1)
  1. BUPROPION HYDROCHLORIDE [Suspect]
     Indication: FATIGUE
     Dosage: 300 MG ONCE DAILY PO  5 1/2 WEEKS
     Route: 048

REACTIONS (6)
  - ANGER [None]
  - DEPRESSION [None]
  - DIZZINESS [None]
  - FATIGUE [None]
  - OBSESSIVE-COMPULSIVE DISORDER [None]
  - PRODUCT SUBSTITUTION ISSUE [None]
